FAERS Safety Report 9224204 (Version 6)
Quarter: 2013Q4

REPORT INFORMATION
  Report Type: Report from Study
  Country: TW (occurrence: TW)
  Receive Date: 20130411
  Receipt Date: 20131002
  Transmission Date: 20140711
  Serious: Yes (Death, Life-Threatening, Hospitalization)
  Sender: FDA-Public Use
  Company Number: TW-009507513-1304TWN004163

PATIENT
  Age: 71 Year
  Sex: Male
  Weight: 69.7 kg

DRUGS (7)
  1. DEXAMETHASONE [Suspect]
     Indication: PLASMA CELL MYELOMA
     Dosage: 20 MG, ON DAYS ONE, TWO, FOUR, FIVE, EIGHT, NINE, 11 AND 12 EVERY 21 DAYS
     Route: 048
     Dates: start: 20121016, end: 20130222
  2. BORTEZOMIB [Suspect]
     Dosage: 0.7 MG/M2, ON ONE, FOUR, EIGHT AND 11 EVERY 21 DAYS
     Route: 058
     Dates: start: 20121016, end: 20130222
  3. ASTOMIN [Concomitant]
     Indication: COUGH
     Dosage: UNK
     Dates: start: 20130205
  4. MUCOSOLVAN [Concomitant]
     Indication: COUGH
     Dosage: UNK
     Dates: start: 20130205
  5. LOPERAMIDE HYDROCHLORIDE [Concomitant]
     Indication: DIARRHOEA
     Dosage: UNK
     Dates: start: 20130205, end: 20130222
  6. GASCON [Concomitant]
     Indication: PROPHYLAXIS
     Dosage: UNK
     Dates: start: 20130205, end: 20130222
  7. ACETAMINOPHEN [Concomitant]
     Indication: PROPHYLAXIS
     Dosage: UNK
     Dates: start: 20130205, end: 20130224

REACTIONS (3)
  - Brain abscess [Recovered/Resolved with Sequelae]
  - Urinary tract infection [Not Recovered/Not Resolved]
  - Septic shock [Fatal]
